FAERS Safety Report 16423710 (Version 1)
Quarter: 2019Q2

REPORT INFORMATION
  Report Type: Spontaneous
  Country: DE (occurrence: DE)
  Receive Date: 20190613
  Receipt Date: 20190613
  Transmission Date: 20190711
  Serious: Yes (Other)
  Sender: FDA-Public Use
  Company Number: DE-SHILPA MEDICARE LIMITED-SML-DE-2019-00138

PATIENT
  Age: 51 Year
  Sex: Female

DRUGS (2)
  1. IMATINIB, UNKNOWN [Suspect]
     Active Substance: IMATINIB
     Indication: GASTROINTESTINAL STROMAL TUMOUR
     Dosage: 400 MG, QD
     Route: 065
  2. IMATINIB, UNKNOWN [Suspect]
     Active Substance: IMATINIB
     Indication: GASTROINTESTINAL STROMAL TUMOUR
     Dosage: 400 MG, QD
     Route: 065

REACTIONS (5)
  - Malignant neoplasm progression [Unknown]
  - Gastrointestinal stromal tumour [Unknown]
  - Metastases to heart [Unknown]
  - Recurrent cancer [Unknown]
  - Intracardiac mass [Unknown]
